FAERS Safety Report 4846191-X (Version None)
Quarter: 2005Q4

REPORT INFORMATION
  Report Type: 
  Country: None (occurrence: None)
  Receive Date: 20051206
  Receipt Date: 20051122
  Transmission Date: 20060501
  Serious: Yes (Hospitalization)
  Sender: FDA-Public Use
  Company Number: AU-MERCK-0511AUS00337

PATIENT
  Age: 71 Year
  Sex: Male

DRUGS (2)
  1. FOSAMAX [Suspect]
     Indication: OSTEOPOROSIS
     Route: 048
     Dates: start: 20050701, end: 20051001
  2. [THERAPY UNSPECIFIED] [Suspect]
     Route: 065

REACTIONS (8)
  - ARTHRALGIA [None]
  - CARDIAC DISORDER [None]
  - DIZZINESS [None]
  - DRUG INTERACTION [None]
  - MYOCARDIAL INFARCTION [None]
  - NECK PAIN [None]
  - PAIN [None]
  - TONGUE DISORDER [None]
